FAERS Safety Report 14067548 (Version 1)
Quarter: 2017Q4

REPORT INFORMATION
  Report Type: Spontaneous
  Country: US (occurrence: US)
  Receive Date: 20171009
  Receipt Date: 20171009
  Transmission Date: 20180321
  Serious: No
  Sender: FDA-Public Use
  Company Number: US-ACTELION-A-NJ2017-160696

PATIENT
  Age: 41 Year
  Sex: Female
  Weight: 92.52 kg

DRUGS (4)
  1. UPTRAVI [Suspect]
     Active Substance: SELEXIPAG
     Indication: PULMONARY ARTERIAL HYPERTENSION
     Dosage: 1600 MCG, BID
     Route: 048
  2. ADCIRCA [Concomitant]
     Active Substance: TADALAFIL
  3. UPTRAVI [Suspect]
     Active Substance: SELEXIPAG
     Dosage: 1400 MCG, BID
     Route: 048
  4. LETAIRIS [Concomitant]
     Active Substance: AMBRISENTAN

REACTIONS (11)
  - Upper-airway cough syndrome [Unknown]
  - Fatigue [Unknown]
  - Headache [Unknown]
  - Systemic lupus erythematosus [Unknown]
  - Sinus congestion [Unknown]
  - Ear congestion [Unknown]
  - Asthenia [Unknown]
  - Dizziness [Unknown]
  - Flushing [Unknown]
  - Ear discomfort [Unknown]
  - Seasonal allergy [Unknown]
